FAERS Safety Report 19967650 (Version 1)
Quarter: 2021Q4

REPORT INFORMATION
  Report Type: Spontaneous
  Country: US (occurrence: US)
  Receive Date: 20211019
  Receipt Date: 20211019
  Transmission Date: 20220304
  Serious: Yes (Life-Threatening, Hospitalization)
  Sender: FDA-Public Use
  Company Number: US-JNJFOC-20211011346

PATIENT
  Age: 37 Year
  Sex: Female
  Weight: 66.4 kg

DRUGS (4)
  1. ACETAMINOPHEN [Suspect]
     Active Substance: ACETAMINOPHEN
     Indication: Pain
     Dosage: ACETAMINOPHEN APPROXIMATELY 7000 MG PER DAY OVER A PERIOD OF 56 DAYS STARTING FROM JAN-2001
     Route: 048
     Dates: start: 200101
  2. NORCO [Suspect]
     Active Substance: ACETAMINOPHEN\HYDROCODONE BITARTRATE
     Indication: Pain
     Dosage: ACETAMINOPHEN 325 MG/HYDROCODONE 5 MG APPROXIMATELY 3250 MG/50 MG FOR 56 DAYS
     Route: 065
     Dates: start: 200101
  3. PAXIL [Concomitant]
     Active Substance: PAROXETINE HYDROCHLORIDE
     Indication: Product used for unknown indication
     Dosage: MORE THAN 12 MONTHS
     Route: 065
  4. XANAX [Concomitant]
     Active Substance: ALPRAZOLAM
     Indication: Product used for unknown indication
     Dosage: MORE THAN 12 MONTHS
     Route: 065

REACTIONS (5)
  - Acute hepatic failure [Recovered/Resolved]
  - Brain oedema [Recovered/Resolved]
  - Pancreatitis acute [Recovered/Resolved]
  - Lung infiltration [Recovered/Resolved]
  - Accidental overdose [Recovered/Resolved]
